FAERS Safety Report 7765596-0 (Version None)
Quarter: 2011Q3

REPORT INFORMATION
  Report Type: 
  Country: None (occurrence: None)
  Receive Date: 20110921
  Receipt Date: 20110915
  Transmission Date: 20111222
  Serious: Yes (Other)
  Sender: FDA-Public Use
  Company Number: GB-TEVA-300864ISR

PATIENT
  Age: 9 Month
  Sex: Female

DRUGS (3)
  1. PREDNISOLONE [Suspect]
     Indication: WEGENER'S GRANULOMATOSIS
     Route: 048
  2. PREDNISOLONE [Suspect]
     Dosage: 10 MILLIGRAM;
     Route: 048
  3. CYCLOSPORINE [Suspect]
     Indication: WEGENER'S GRANULOMATOSIS

REACTIONS (6)
  - HEARING IMPAIRED [None]
  - URINARY TRACT INFECTION [None]
  - VULVOVAGINAL CANDIDIASIS [None]
  - INFERTILITY [None]
  - FUNGAL SKIN INFECTION [None]
  - ORAL CANDIDIASIS [None]
